FAERS Safety Report 4676624-3 (Version None)
Quarter: 2005Q2

REPORT INFORMATION
  Report Type: 
  Country: None (occurrence: None)
  Receive Date: 20050527
  Receipt Date: 20050516
  Transmission Date: 20051028
  Serious: Yes (Other)
  Sender: FDA-Public Use
  Company Number: US-ROCHE-405034

PATIENT
  Age: 54 Year
  Sex: Male

DRUGS (2)
  1. PEGASYS [Suspect]
     Indication: DRUG USE FOR UNKNOWN INDICATION
     Dosage: ROUTE REPORTED AS INJ.
     Route: 050
     Dates: start: 20041029
  2. COPEGUS [Suspect]
     Indication: DRUG USE FOR UNKNOWN INDICATION
     Route: 048
     Dates: start: 20041029

REACTIONS (4)
  - ASTHENIA [None]
  - CARDIAC VALVE DISEASE [None]
  - DYSPNOEA EXERTIONAL [None]
  - SCAR [None]
